FAERS Safety Report 4679260-8 (Version None)
Quarter: 2005Q2

REPORT INFORMATION
  Report Type: 
  Country: None (occurrence: None)
  Receive Date: 20050531
  Receipt Date: 20050531
  Transmission Date: 20051028
  Serious: No
  Sender: FDA-Public Use
  Company Number: None

PATIENT
  Sex: Female
  Weight: 66.3 kg

DRUGS (2)
  1. DOXORUBICIN HCL [Suspect]
     Dosage: 60 MG/M2 IV Q14 DAYS X 4 CYCLES
     Route: 042
     Dates: start: 20050405
  2. CYCLOPHOSPHAMIDE [Suspect]
     Dosage: 600 MG/M2 IV Q14 DAYS X 4 CYCLES
     Route: 042
     Dates: start: 20050405

REACTIONS (9)
  - ABDOMINAL PAIN [None]
  - CHILLS [None]
  - DIARRHOEA [None]
  - FATIGUE [None]
  - FEBRILE NEUTROPENIA [None]
  - HAEMOGLOBIN DECREASED [None]
  - HYPOTENSION [None]
  - PYREXIA [None]
  - SEPSIS [None]
